FAERS Safety Report 24104760 (Version 1)
Quarter: 2024Q3

REPORT INFORMATION
  Report Type: Spontaneous
  Country: BG (occurrence: BG)
  Receive Date: 20240717
  Receipt Date: 20240717
  Transmission Date: 20241016
  Serious: Yes (Other)
  Sender: PFIZER
  Company Number: None

PATIENT
  Age: 30 Year
  Sex: Female
  Weight: 76 kg

DRUGS (2)
  1. DOSTINEX [Suspect]
     Active Substance: CABERGOLINE
     Indication: Lactation insufficiency
     Dosage: FOR 2 DAYS,HALF A TABLET AT 12 HOURS
     Route: 048
     Dates: start: 20240612, end: 20240614
  2. VIBROCIL [DIMETINDENE MALEATE;PHENYLEPHRINE] [Concomitant]
     Indication: Lactation insufficiency
     Dosage: 2,5 MG/ 0,25 MG/ML

REACTIONS (5)
  - Postpartum haemorrhage [Recovered/Resolved]
  - Dizziness [Recovered/Resolved]
  - Depression [Recovered/Resolved]
  - Asthenia [Recovered/Resolved]
  - Somnolence [Recovered/Resolved]

NARRATIVE: CASE EVENT DATE: 20240612
